FAERS Safety Report 8176466-0 (Version None)
Quarter: 2012Q1

REPORT INFORMATION
  Report Type: 
  Country: None (occurrence: None)
  Receive Date: 20120301
  Receipt Date: 20120228
  Transmission Date: 20120608
  Serious: Yes (Disabling)
  Sender: FDA-Public Use
  Company Number: US-PFIZER INC-2012053040

PATIENT
  Sex: Male
  Weight: 90.703 kg

DRUGS (4)
  1. LYRICA [Suspect]
     Indication: PAIN
     Dosage: 150 MG, 3X/DAY
     Route: 048
     Dates: start: 20110101
  2. NEURONTIN [Suspect]
     Indication: MYALGIA
  3. HYDROCODONE [Concomitant]
     Dosage: UNK
  4. NEURONTIN [Suspect]
     Indication: NEURALGIA
     Dosage: 400 MG, 2X/DAY
     Route: 048

REACTIONS (3)
  - WEIGHT INCREASED [None]
  - DRUG INEFFECTIVE [None]
  - SCOLIOSIS [None]
